FAERS Safety Report 16540700 (Version 1)
Quarter: 2019Q3

REPORT INFORMATION
  Report Type: Spontaneous
  Country: US (occurrence: US)
  Receive Date: 20190708
  Receipt Date: 20190708
  Transmission Date: 20191004
  Serious: Yes (Death)
  Sender: FDA-Public Use
  Company Number: US-PFIZER INC-2019289126

PATIENT
  Age: 55 Year
  Sex: Male

DRUGS (11)
  1. FLUCONAZOLE. [Suspect]
     Active Substance: FLUCONAZOLE
     Dosage: 200 MG, DAILY (MAINTENANCE)
  2. DEOXYCHOLIC ACID [Concomitant]
     Active Substance: DEOXYCHOLIC ACID
     Indication: MENINGITIS CRYPTOCOCCAL
     Dosage: 1 MG/KG, DAILY (WEEKLY MAINENANCE)
  3. DEXAMETHASONE. [Suspect]
     Active Substance: DEXAMETHASONE
     Indication: MENINGITIS CRYPTOCOCCAL
     Dosage: 4 MG, 3X/DAY
  4. AMPHOTERICIN B DEOXYCHOLATE [Concomitant]
     Active Substance: AMPHOTERICIN B
     Dosage: 1 MG/KG, DAILY (WEEKLY MAINTENANCE)
  5. VORICONAZOLE. [Concomitant]
     Active Substance: VORICONAZOLE
     Indication: MENINGITIS CRYPTOCOCCAL
     Dosage: 500 MG, DAILY
  6. AMPHOTERICIN B, LIPOSOME [Suspect]
     Active Substance: AMPHOTERICIN B
     Dosage: 3 MG/KG, UNK (THREE ADDITIONAL INDUCTION COURSES)
  7. FLUCONAZOLE. [Suspect]
     Active Substance: FLUCONAZOLE
     Indication: MENINGITIS CRYPTOCOCCAL
     Dosage: 400 MG, DAILY (FOR TWO MONTHS)
     Route: 048
  8. FLUCONAZOLE. [Suspect]
     Active Substance: FLUCONAZOLE
     Dosage: 800 MG, UNK (CONSOLIDATION THERAPHY)
  9. FLUCYTOSINE. [Suspect]
     Active Substance: FLUCYTOSINE
     Indication: MENINGITIS CRYPTOCOCCAL
     Dosage: 100 MG/KG, DAILY
     Route: 048
  10. AMPHOTERICIN B, LIPOSOME [Suspect]
     Active Substance: AMPHOTERICIN B
     Dosage: 6 MG/KG, DAILY (12 WEEK COURSE)
  11. AMPHOTERICIN B, LIPOSOME [Suspect]
     Active Substance: AMPHOTERICIN B
     Indication: MENINGITIS CRYPTOCOCCAL
     Dosage: 4 MG/KG, DAILY (TWO -WEEK INDUCTION COURSE)

REACTIONS (1)
  - Drug ineffective [Fatal]
